FAERS Safety Report 6116663-9 (Version None)
Quarter: 2009Q1

REPORT INFORMATION
  Report Type: 
  Country: None (occurrence: None)
  Receive Date: 20090314
  Receipt Date: 20081223
  Transmission Date: 20090719
  Serious: No
  Sender: FDA-Public Use
  Company Number: US-ABBOTT-08P-163-0494715-00

PATIENT
  Sex: Female
  Weight: 53.118 kg

DRUGS (3)
  1. HUMIRA [Suspect]
     Indication: CROHN'S DISEASE
     Dates: start: 20080829, end: 20080829
  2. HUMIRA [Suspect]
     Dates: start: 20081029, end: 20081203
  3. UNKNOWN ANTIBIOTIC [Concomitant]
     Indication: CYSTITIS

REACTIONS (6)
  - CYSTITIS [None]
  - DIZZINESS [None]
  - HERPES ZOSTER [None]
  - INCORRECT DOSE ADMINISTERED [None]
  - PARAESTHESIA [None]
  - RESPIRATORY TRACT INFECTION [None]
